FAERS Safety Report 16470719 (Version 4)
Quarter: 2020Q1

REPORT INFORMATION
  Report Type: Spontaneous
  Country: US (occurrence: US)
  Receive Date: 20190624
  Receipt Date: 20200109
  Transmission Date: 20200409
  Serious: Yes (Hospitalization)
  Sender: FDA-Public Use
  Company Number: US-CATALYST PHARMACEUTICALS, INC-2019CAT00166

PATIENT
  Sex: Female
  Weight: 49.89 kg

DRUGS (6)
  1. IVG GAMMAGARD INFUSION [Concomitant]
     Dosage: UNK, 2X/MONTH
     Route: 042
  2. FIRDAPSE [Suspect]
     Active Substance: AMIFAMPRIDINE
     Dosage: 20 MG
     Dates: start: 2019
  3. UNSPECIFIED PAIN MEDICATION [Suspect]
     Active Substance: UNSPECIFIED INGREDIENT
     Indication: PAIN
     Dosage: UNK
     Dates: start: 2019
  4. FIRDAPSE [Suspect]
     Active Substance: AMIFAMPRIDINE
     Indication: MYASTHENIC SYNDROME
     Dosage: 20 MG, 4X/DAY
     Route: 048
     Dates: start: 201904, end: 2019
  5. RITUXAN [Concomitant]
     Active Substance: RITUXIMAB
     Dosage: UNK, 4X/YEAR (EVERY 3 MONTHS)
  6. FIBER [Concomitant]
     Active Substance: PSYLLIUM HUSK
     Dosage: UNK
     Dates: end: 20190522

REACTIONS (8)
  - Talipes [Unknown]
  - Dyspepsia [Recovering/Resolving]
  - Surgery [Unknown]
  - Constipation [Not Recovered/Not Resolved]
  - Drug interaction [Unknown]
  - Breath odour [Not Recovered/Not Resolved]
  - Drug ineffective [Unknown]
  - Nausea [Not Recovered/Not Resolved]

NARRATIVE: CASE EVENT DATE: 2019
